FAERS Safety Report 8384906-7 (Version None)
Quarter: 2012Q2

REPORT INFORMATION
  Report Type: 
  Country: None (occurrence: None)
  Receive Date: 20120524
  Receipt Date: 20120521
  Transmission Date: 20120825
  Serious: Yes (Hospitalization)
  Sender: FDA-Public Use
  Company Number: PHHO2012US007695

PATIENT
  Age: 10 Year
  Sex: Male
  Weight: 22.3 kg

DRUGS (17)
  1. DOXORUBICIN HCL [Suspect]
     Indication: ACUTE LYMPHOCYTIC LEUKAEMIA
     Dosage: 27 MG, QD ON DAY 1 AND 5
     Dates: start: 20120331, end: 20120501
  2. LEUCOVORIN CALCIUM [Concomitant]
     Dosage: UNK
     Dates: start: 20120503
  3. ONDANSETRON [Concomitant]
     Indication: VOMITING
  4. SENNA-MINT WAF [Concomitant]
     Dosage: 15 MG, BID
     Route: 048
  5. METHYLPREDNISOLONE ACETATE [Suspect]
     Indication: ACUTE LYMPHOCYTIC LEUKAEMIA
     Dosage: 9.7 MG, Q8H ON DAY 4 TO DAY 32
  6. METHOTREXATE [Suspect]
     Indication: ACUTE LYMPHOCYTIC LEUKAEMIA
     Dosage: UNK
     Dates: start: 20120503
  7. ETOPOSIDE [Suspect]
     Indication: ACUTE LYMPHOCYTIC LEUKAEMIA
     Dosage: UNK
     Dates: start: 20120510
  8. COLACE [Concomitant]
     Dosage: 50 MG, BID
     Route: 048
  9. SULFAMETHOXYPYRAZINE/TRIMETHOPRIM [Concomitant]
     Dosage: 1.5 DF, EVERY MONDAY, WEDNESDAY AND FRIDAY
     Route: 048
  10. AFINITOR [Suspect]
     Indication: ACUTE LYMPHOCYTIC LEUKAEMIA
     Dosage: 2 MG, QD ON DAY 1 TO DAY 32
     Route: 048
     Dates: start: 20120331, end: 20120501
  11. ONDANSETRON [Concomitant]
     Indication: NAUSEA
     Dosage: 4 MG, Q8H OR PRN
     Route: 048
  12. ONCASPAR [Suspect]
     Indication: ACUTE LYMPHOCYTIC LEUKAEMIA
     Dosage: 2275 IU, QD ON DAYS 4 TO 32
     Dates: start: 20120331, end: 20120501
  13. VINCRISTINE [Suspect]
     Indication: ACUTE LYMPHOCYTIC LEUKAEMIA
     Dosage: 1.4 MG, QD ON DAY 4, 11, 18 AND 25
     Dates: start: 20120331, end: 20120501
  14. CONCERTA [Concomitant]
     Dosage: 27 MG, QD
     Route: 048
  15. CYTOXAN [Suspect]
     Indication: ACUTE LYMPHOCYTIC LEUKAEMIA
     Dosage: UNK
     Dates: start: 20120510
  16. CALCIUM CARBONATE [Concomitant]
     Dosage: 750 MG, TID
     Route: 048
  17. CLONIDINE [Concomitant]
     Dosage: 0.1 MG, UNK
     Route: 048

REACTIONS (1)
  - PYREXIA [None]
